FAERS Safety Report 5704124-8 (Version None)
Quarter: 2008Q2

REPORT INFORMATION
  Report Type: 
  Country: None (occurrence: None)
  Receive Date: 20080414
  Receipt Date: 20080331
  Transmission Date: 20081010
  Serious: Yes (Other)
  Sender: FDA-Public Use
  Company Number: US-AMGEN-KDL270812

PATIENT
  Sex: Female

DRUGS (2)
  1. ENBREL [Suspect]
     Indication: RHEUMATOID ARTHRITIS
     Route: 064
     Dates: start: 20060701, end: 20070724
  2. VITAMIN TAB [Concomitant]

REACTIONS (2)
  - SOLITARY KIDNEY [None]
  - UMBILICAL CORD VASCULAR DISORDER [None]
